FAERS Safety Report 5684576-2 (Version None)
Quarter: 2008Q1

REPORT INFORMATION
  Report Type: 
  Country: None (occurrence: None)
  Receive Date: 20080328
  Receipt Date: 20070307
  Transmission Date: 20080703
  Serious: Yes (Other)
  Sender: FDA-Public Use
  Company Number: US-BRISTOL-MYERS SQUIBB COMPANY-13704622

PATIENT

DRUGS (1)
  1. ERBITUX [Suspect]

REACTIONS (1)
  - INFUSION SITE EXTRAVASATION [None]
